FAERS Safety Report 20985642 (Version 1)
Quarter: 2022Q2

REPORT INFORMATION
  Report Type: Report from Study
  Country: CA (occurrence: CA)
  Receive Date: 20220621
  Receipt Date: 20220621
  Transmission Date: 20220720
  Serious: Yes (Death, Other)
  Sender: FDA-Public Use
  Company Number: CA-BAYER-2022A084303

PATIENT
  Age: 66 Year
  Sex: Female

DRUGS (1)
  1. EYLEA [Suspect]
     Active Substance: AFLIBERCEPT
     Indication: Neovascular age-related macular degeneration
     Dosage: UNK; SOLUTION FOR INJECTION
     Dates: start: 20190211

REACTIONS (1)
  - Death [Fatal]

NARRATIVE: CASE EVENT DATE: 20220227
